FAERS Safety Report 13656859 (Version 1)
Quarter: 2017Q2

REPORT INFORMATION
  Report Type: Spontaneous
  Country: RU (occurrence: RU)
  Receive Date: 20170615
  Receipt Date: 20170615
  Transmission Date: 20170830
  Serious: Yes (Other)
  Sender: FDA-Public Use
  Company Number: RU-ASTRAZENECA-2017SE60678

PATIENT
  Age: 66 Year
  Sex: Female
  Weight: 80 kg

DRUGS (4)
  1. BRILINTA [Suspect]
     Active Substance: TICAGRELOR
     Indication: ANGINA UNSTABLE
     Route: 048
     Dates: start: 201701
  2. LORISTA [Concomitant]
     Active Substance: LOSARTAN POTASSIUM
  3. ACETYLSALICYLIC ACID [Concomitant]
     Active Substance: ASPIRIN
  4. KATADOLON [Concomitant]
     Active Substance: FLUPIRTINE

REACTIONS (3)
  - Pain [Unknown]
  - Musculoskeletal pain [Recovered/Resolved]
  - Blood cholesterol increased [Unknown]
